FAERS Safety Report 8834715 (Version 8)
Quarter: 2014Q1

REPORT INFORMATION
  Report Type: Report from Study
  Country: DE (occurrence: DE)
  Receive Date: 20121010
  Receipt Date: 20140314
  Transmission Date: 20141002
  Serious: Yes (Death, Hospitalization)
  Sender: FDA-Public Use
  Company Number: DE-ROCHE-1126456

PATIENT
  Age: 65 Year
  Sex: Male
  Weight: 70 kg

DRUGS (11)
  1. RITUXIMAB [Suspect]
     Indication: MANTLE CELL LYMPHOMA REFRACTORY
     Route: 065
     Dates: start: 20120921
  2. RITUXIMAB [Suspect]
     Route: 065
     Dates: start: 20121018
  3. RITUXIMAB [Suspect]
     Route: 065
     Dates: start: 20120827, end: 20121018
  4. RITUXIMAB [Suspect]
     Route: 065
     Dates: start: 20121122, end: 20121122
  5. HIGH DOSE ARA-C [Suspect]
     Indication: MANTLE CELL LYMPHOMA REFRACTORY
     Route: 065
     Dates: start: 20120828, end: 20120829
  6. HIGH DOSE ARA-C [Suspect]
     Route: 065
     Dates: start: 20120927
  7. HIGH DOSE ARA-C [Suspect]
     Route: 065
     Dates: start: 20121019, end: 20121020
  8. DEXAMETHASONE [Suspect]
     Indication: MANTLE CELL LYMPHOMA REFRACTORY
     Route: 065
     Dates: start: 20120827, end: 20120830
  9. DEXAMETHASONE [Suspect]
     Route: 065
     Dates: start: 20120927
  10. DEXAMETHASONE [Suspect]
     Route: 065
     Dates: start: 20121018, end: 20121021
  11. DEXAMETHASONE [Suspect]
     Route: 065
     Dates: start: 20121126, end: 20121130

REACTIONS (6)
  - Pneumonia [Fatal]
  - Febrile neutropenia [Recovered/Resolved]
  - Epistaxis [Recovered/Resolved]
  - Anaemia [Not Recovered/Not Resolved]
  - Thrombocytopenia [Recovered/Resolved]
  - Lobar pneumonia [Recovered/Resolved with Sequelae]
